FAERS Safety Report 4752069-2 (Version None)
Quarter: 2005Q3

REPORT INFORMATION
  Report Type: 
  Country: None (occurrence: None)
  Receive Date: 20050824
  Receipt Date: 20050427
  Transmission Date: 20060218
  Serious: Yes (Hospitalization, Other)
  Sender: FDA-Public Use
  Company Number: US-MERCK-0505USA00255

PATIENT
  Age: 58 Year
  Sex: Male
  Weight: 123 kg

DRUGS (4)
  1. VIOXX [Suspect]
     Indication: BACK PAIN
     Route: 048
     Dates: start: 20000601, end: 20030730
  2. VIOXX [Suspect]
     Indication: ARTHRALGIA
     Route: 048
     Dates: start: 20000601, end: 20030730
  3. VASOTEC RPD [Concomitant]
     Route: 065
     Dates: start: 20000101
  4. ZESTRIL [Concomitant]
     Route: 065
     Dates: start: 20000101

REACTIONS (21)
  - ABNORMAL CLOTTING FACTOR [None]
  - AMMONIA INCREASED [None]
  - ASCITES [None]
  - BURSITIS [None]
  - CELLULITIS [None]
  - CEREBROVASCULAR ACCIDENT [None]
  - CERVICAL VERTEBRAL FRACTURE [None]
  - CIRRHOSIS ALCOHOLIC [None]
  - COMA [None]
  - DEPRESSION [None]
  - DIABETES MELLITUS INADEQUATE CONTROL [None]
  - ENCEPHALOPATHY [None]
  - FALL [None]
  - GOUTY ARTHRITIS [None]
  - HAEMOCHROMATOSIS [None]
  - HYPERGLYCAEMIA [None]
  - OCCULT BLOOD POSITIVE [None]
  - PRESCRIBED OVERDOSE [None]
  - SUICIDAL IDEATION [None]
  - ULNA FRACTURE [None]
  - URINARY TRACT INFECTION [None]
